FAERS Safety Report 9554988 (Version 2)
Quarter: 2013Q4

REPORT INFORMATION
  Report Type: Spontaneous
  Country: US (occurrence: US)
  Receive Date: 20130926
  Receipt Date: 20131025
  Transmission Date: 20140711
  Serious: Yes (Death, Other)
  Sender: FDA-Public Use
  Company Number: US-MERCK-1309USA011626

PATIENT
  Sex: Female
  Weight: 97.51 kg

DRUGS (1)
  1. TEMODAR [Suspect]
     Dosage: 330 MG BY COMBINING 250 MG AND 20 MG FOR 5 DAYS EVERY 28 DAYS
     Route: 048
     Dates: start: 20130218, end: 201308

REACTIONS (1)
  - Glioblastoma multiforme [Fatal]
